FAERS Safety Report 4855825-5 (Version None)
Quarter: 2005Q4

REPORT INFORMATION
  Report Type: 
  Country: None (occurrence: None)
  Receive Date: 20051216
  Receipt Date: 20050908
  Transmission Date: 20060501
  Serious: Yes (Hospitalization)
  Sender: FDA-Public Use
  Company Number: US-MERCK-0509USA01078

PATIENT
  Age: 31 Year
  Sex: Male
  Weight: 98 kg

DRUGS (9)
  1. VIOXX [Suspect]
     Indication: BACK PAIN
     Route: 048
     Dates: start: 20000127, end: 20010307
  2. OXYCONTIN [Concomitant]
     Route: 065
     Dates: start: 20000127
  3. OXYCONTIN [Concomitant]
     Route: 065
  4. NEURONTIN [Concomitant]
     Route: 065
     Dates: start: 20000228, end: 20001001
  5. SKELAXIN [Concomitant]
     Route: 065
  6. ACETAMINOPHEN AND HYDROCODONE BITARTRATE [Concomitant]
     Route: 065
  7. NITROQUICK [Concomitant]
     Route: 065
     Dates: start: 20001213
  8. ASPIRIN [Concomitant]
     Route: 048
     Dates: start: 20001213
  9. ZANTAC [Concomitant]
     Route: 065
     Dates: start: 20001227

REACTIONS (15)
  - ANXIETY [None]
  - BLOOD TESTOSTERONE DECREASED [None]
  - C-REACTIVE PROTEIN INCREASED [None]
  - CARDIAC FAILURE CONGESTIVE [None]
  - CHEST PAIN [None]
  - CORONARY ARTERY DISEASE [None]
  - DEPRESSION [None]
  - GASTROOESOPHAGEAL REFLUX DISEASE [None]
  - HYPERTENSION [None]
  - INTERVERTEBRAL DISC DISORDER [None]
  - MUSCLE INJURY [None]
  - MYOCARDIAL INFARCTION [None]
  - OSTEOARTHRITIS [None]
  - TEMPERATURE INTOLERANCE [None]
  - WEIGHT INCREASED [None]
